FAERS Safety Report 6037705-5 (Version None)
Quarter: 2009Q1

REPORT INFORMATION
  Report Type: 
  Country: None (occurrence: None)
  Receive Date: 20090113
  Receipt Date: 20090111
  Transmission Date: 20090719
  Serious: Yes (Death)
  Sender: FDA-Public Use
  Company Number: DILUS-07-1085

PATIENT
  Age: 29 Year
  Sex: Female

DRUGS (6)
  1. DIPRIVAN [Suspect]
     Indication: SEDATION
     Dosage: INTRAVENOUS; HOSPITAL DAY 6 FOR 24 HOURS, INTRAVENOUS;  ONCE IV HOSPITAL DAY 6, INTRAVENOUS; ONCE IV
     Route: 042
  2. MANNITOL [Concomitant]
  3. NEUROMUSCULAR BLOCKADES [Concomitant]
  4. EPINEPHRINE [Concomitant]
  5. THIOPENTAL SODIUM [Concomitant]
  6. PHENYLEPHRINE (PHENYLEPHRINE) [Concomitant]

REACTIONS (8)
  - BLOOD CREATINE PHOSPHOKINASE INCREASED [None]
  - CIRCULATORY COLLAPSE [None]
  - HAEMODYNAMIC INSTABILITY [None]
  - HYPOTENSION [None]
  - METABOLIC ACIDOSIS [None]
  - MYOGLOBINURIA [None]
  - NEUROLOGICAL DECOMPENSATION [None]
  - PROPOFOL INFUSION SYNDROME [None]
